FAERS Safety Report 5630716-0 (Version None)
Quarter: 2008Q1

REPORT INFORMATION
  Report Type: 
  Country: None (occurrence: None)
  Receive Date: 20080219
  Receipt Date: 20080211
  Transmission Date: 20080703
  Serious: Yes (Hospitalization)
  Sender: FDA-Public Use
  Company Number: US-JNJFOC-20080202710

PATIENT
  Sex: Male
  Weight: 48.99 kg

DRUGS (7)
  1. DURAGESIC-100 [Suspect]
     Indication: BACK PAIN
     Route: 062
  2. FENTANYL TRANSDERMAL SYSTEM [Suspect]
     Indication: BACK PAIN
     Dosage: 2X75UG/HR PATCHES
     Route: 062
  3. ATIVAN [Concomitant]
     Indication: ANXIETY
     Route: 048
  4. PRAZOSIN HCL [Concomitant]
     Indication: ANXIETY
     Route: 048
  5. REMERON [Concomitant]
     Indication: SLEEP DISORDER
     Dosage: 2 X 15 MG
     Route: 048
  6. DEPAKOTE [Concomitant]
     Indication: CONVULSION
     Route: 048
  7. VICODIN [Concomitant]
     Indication: BREAKTHROUGH PAIN
     Route: 048

REACTIONS (5)
  - APPLICATION SITE IRRITATION [None]
  - BLOOD TESTOSTERONE DECREASED [None]
  - DEVICE LEAKAGE [None]
  - EPILEPSY [None]
  - FEELING ABNORMAL [None]
